FAERS Safety Report 10046515 (Version 1)
Quarter: 2014Q1

REPORT INFORMATION
  Report Type: Spontaneous
  Country: US (occurrence: None)
  Receive Date: 20140328
  Receipt Date: 20140328
  Transmission Date: 20141002
  Serious: Yes (Disabling)
  Sender: FDA-Public Use
  Company Number: None

PATIENT
  Age: 39 Year
  Sex: Female
  Weight: 81.65 kg

DRUGS (2)
  1. CIPROFLOXACIN HCL [Suspect]
     Indication: LYME DISEASE
     Dosage: 1 PILL TWICE DAILY TAKEN BY MOUTH
     Route: 048
     Dates: start: 20140210, end: 20140214
  2. CIPROFLOXACIN HCL [Suspect]
     Indication: BACTERIAL INFECTION
     Dosage: 1 PILL TWICE DAILY TAKEN BY MOUTH
     Route: 048
     Dates: start: 20140210, end: 20140214

REACTIONS (11)
  - Neuralgia [None]
  - Hypoaesthesia [None]
  - Paraesthesia [None]
  - Pain [None]
  - Arthritis [None]
  - Musculoskeletal pain [None]
  - Asthenia [None]
  - Tinnitus [None]
  - Tendonitis [None]
  - Paraesthesia [None]
  - Temperature intolerance [None]
